FAERS Safety Report 5272792-3 (Version None)
Quarter: 2007Q1

REPORT INFORMATION
  Report Type: 
  Country: None (occurrence: None)
  Receive Date: 20070322
  Receipt Date: 20070310
  Transmission Date: 20070707
  Serious: Yes (Hospitalization)
  Sender: FDA-Public Use
  Company Number: GB-ROCHE-487670

PATIENT
  Age: 56 Year
  Sex: Male

DRUGS (3)
  1. BONVIVA [Suspect]
     Indication: OSTEOPOROSIS
     Route: 048
     Dates: start: 20061214
  2. CLONAZEPAM [Concomitant]
  3. GABAPENTIN [Concomitant]

REACTIONS (1)
  - NEUROLOGICAL INFECTION [None]
